FAERS Safety Report 9848756 (Version 1)
Quarter: 2014Q1

REPORT INFORMATION
  Report Type: Spontaneous
  Country: US (occurrence: US)
  Receive Date: 20140128
  Receipt Date: 20140128
  Transmission Date: 20141002
  Serious: Yes (Other)
  Sender: FDA-Public Use
  Company Number: US-BAYER-2014-011115

PATIENT
  Age: 56 Year
  Sex: Male
  Weight: 93 kg

DRUGS (2)
  1. NEO-SYNEPHRINE COLD + SINUS EXTRA STRENGTH [Suspect]
     Indication: NASOPHARYNGITIS
     Dosage: 2 PUFF(S), TID
     Route: 045
     Dates: start: 201401
  2. DAYQUIL [DEXTROMET HBR,GUAIF,PARACET,PSEUDOEPH HCL] [Concomitant]
     Indication: NASOPHARYNGITIS

REACTIONS (2)
  - Drug dependence [None]
  - Amphetamines positive [None]
